FAERS Safety Report 19877332 (Version 1)
Quarter: 2021Q3

REPORT INFORMATION
  Report Type: Spontaneous
  Country: IT (occurrence: IT)
  Receive Date: 20210923
  Receipt Date: 20210923
  Transmission Date: 20211014
  Serious: Yes (Death, Life-Threatening)
  Sender: FDA-Public Use
  Company Number: IT-NOSTRUM LABORATORIES, INC.-2118731

PATIENT
  Age: 43 Year
  Sex: Female

DRUGS (4)
  1. METHADONE HYDROCHLORIDE. [Suspect]
     Active Substance: METHADONE HYDROCHLORIDE
     Indication: ACCIDENTAL OVERDOSE
     Route: 042
  2. ETHYL ALCOHOL [Interacting]
     Active Substance: ALCOHOL
     Route: 048
  3. CODEINE SULFATE. [Interacting]
     Active Substance: CODEINE SULFATE
     Route: 065
  4. MORPHINE SULFATE. [Interacting]
     Active Substance: MORPHINE SULFATE
     Route: 065

REACTIONS (1)
  - Accidental overdose [Fatal]
